FAERS Safety Report 8760377 (Version 2)
Quarter: 2012Q4

REPORT INFORMATION
  Report Type: Spontaneous
  Country: IE (occurrence: None)
  Receive Date: 20120820
  Receipt Date: 20120914
  Transmission Date: 20130627
  Serious: Yes (Other)
  Sender: FDA-Public Use
  Company Number: 218209

PATIENT
  Sex: Male
  Weight: 3.8 kg

DRUGS (6)
  1. INNOHEP [Suspect]
     Indication: DRUG EXPOSURE VIA MOTHER
     Dosage: (1 in 1 d)
     Route: 058
     Dates: start: 20110922
  2. NADROPARIN [Suspect]
     Indication: DRUG EXPOSURE VIA MOTHER
  3. ESTRADIOL [Suspect]
     Indication: DRUG EXPOSURE VIA MOTHER
     Dosage: 6 (3 in 1 D), oral
     Route: 048
     Dates: start: 20110805, end: 20111004
  4. ZYPREXA [Suspect]
     Indication: DRUG EXPOSURE VIA MOTHER
     Route: 048
     Dates: start: 20120302, end: 20120522
  5. ZOPICLONE [Suspect]
     Indication: DRUG EXPOSURE VIA MOTHER
     Route: 048
     Dates: start: 2010, end: 201202
  6. VALDOXAN [Suspect]
     Indication: DRUG EXPOSURE VIA MOTHER
     Dates: start: 2010, end: 201202

REACTIONS (2)
  - Drug withdrawal syndrome neonatal [None]
  - Maternal drugs affecting foetus [None]
